FAERS Safety Report 12310334 (Version 2)
Quarter: 2016Q2

REPORT INFORMATION
  Report Type: Spontaneous
  Country: JP (occurrence: JP)
  Receive Date: 20160427
  Receipt Date: 20160505
  Transmission Date: 20160815
  Serious: Yes (Death)
  Sender: FDA-Public Use
  Company Number: JP-NOVOPROD-489214

PATIENT
  Age: 75 Year
  Sex: Male
  Weight: 43 kg

DRUGS (2)
  1. NOVOSEVEN [Suspect]
     Active Substance: COAGULATION FACTOR VIIA RECOMBINANT HUMAN
     Indication: FACTOR VIII DEFICIENCY
     Dosage: 11 MG, QD
     Route: 042
  2. NOVOSEVEN [Suspect]
     Active Substance: COAGULATION FACTOR VIIA RECOMBINANT HUMAN
     Indication: HAEMORRHAGE

REACTIONS (2)
  - Respiratory failure [Fatal]
  - Pleural effusion [Fatal]

NARRATIVE: CASE EVENT DATE: 20160419
